FAERS Safety Report 14903673 (Version 1)
Quarter: 2018Q2

REPORT INFORMATION
  Report Type: Spontaneous
  Country: US (occurrence: US)
  Receive Date: 20180516
  Receipt Date: 20180516
  Transmission Date: 20180711
  Serious: No
  Sender: FDA-Public Use
  Company Number: US-009507513-1805USA004244

PATIENT
  Sex: Female

DRUGS (1)
  1. NEXPLANON [Suspect]
     Active Substance: ETONOGESTREL
     Dosage: 68MG/ONCE, UNSPECIFIED ARM
     Route: 059
     Dates: start: 201802, end: 20180509

REACTIONS (5)
  - Device breakage [Recovered/Resolved]
  - Inappropriate schedule of drug administration [Unknown]
  - Device kink [Recovered/Resolved]
  - No adverse event [Unknown]
  - Overweight [Unknown]

NARRATIVE: CASE EVENT DATE: 2018
